APPROVED DRUG PRODUCT: SELEGILINE HYDROCHLORIDE
Active Ingredient: SELEGILINE HYDROCHLORIDE
Strength: 5MG
Dosage Form/Route: CAPSULE;ORAL
Application: A075321 | Product #001 | TE Code: AB
Applicant: APOTEX INC
Approved: Dec 4, 1998 | RLD: No | RS: Yes | Type: RX